FAERS Safety Report 20327605 (Version 3)
Quarter: 2022Q2

REPORT INFORMATION
  Report Type: Spontaneous
  Country: US (occurrence: US)
  Receive Date: 20220112
  Receipt Date: 20220406
  Transmission Date: 20220721
  Serious: No
  Sender: FDA-Public Use
  Company Number: US-GSKCCFUS-Case-01260716_AE-73785

PATIENT
  Sex: Male

DRUGS (1)
  1. INCRUSE ELLIPTA [Suspect]
     Active Substance: UMECLIDINIUM BROMIDE
     Indication: Product used for unknown indication
     Dosage: UNK UNK, QD, 62.5 MICRO UNIT
     Route: 055
     Dates: start: 2019

REACTIONS (4)
  - Device use error [Recovered/Resolved]
  - Extra dose administered [Recovered/Resolved]
  - Product dose omission issue [Recovered/Resolved]
  - Product complaint [Unknown]
